APPROVED DRUG PRODUCT: TIZANIDINE HYDROCHLORIDE
Active Ingredient: TIZANIDINE HYDROCHLORIDE
Strength: EQ 6MG BASE
Dosage Form/Route: CAPSULE;ORAL
Application: A213365 | Product #002 | TE Code: AB
Applicant: SENORES PHARMACEUTICALS INC
Approved: May 13, 2024 | RLD: No | RS: No | Type: RX